FAERS Safety Report 5841497-X (Version None)
Quarter: 2008Q3

REPORT INFORMATION
  Report Type: 
  Country: None (occurrence: None)
  Receive Date: 20080812
  Receipt Date: 20080806
  Transmission Date: 20090109
  Serious: Yes (Hospitalization, Other)
  Sender: FDA-Public Use
  Company Number: GB-TEVA-175441ISR

PATIENT
  Age: 15 Year
  Sex: Female

DRUGS (2)
  1. IBUPROFEN TABLETS [Suspect]
     Indication: PYREXIA
  2. PARACETAMOL [Interacting]
     Indication: PYREXIA

REACTIONS (2)
  - DRUG INTERACTION [None]
  - HYPOTHERMIA [None]
